FAERS Safety Report 9097144 (Version 1)
Quarter: 2013Q1

REPORT INFORMATION
  Report Type: Spontaneous
  Country: US (occurrence: US)
  Receive Date: 20130212
  Receipt Date: 20130212
  Transmission Date: 20140127
  Serious: Yes (Death, Hospitalization)
  Sender: FDA-Public Use
  Company Number: US-SANOFI-AVENTIS-2013SA011652

PATIENT
  Age: 96 Year
  Sex: Female
  Weight: 61.23 kg

DRUGS (5)
  1. LASIX [Suspect]
     Dosage: DOSE: TITRATED TO 40 MG IN THE MORNING AND 20 MG AT NIGHT IN 2011 AS A FUID PILL
     Dates: start: 200706
  2. ASPIRIN [Suspect]
  3. COUMADIN [Suspect]
  4. LISINOPRIL [Suspect]
     Dates: end: 201111
  5. SILDENAFIL CITRATE [Suspect]
     Indication: PULMONARY HYPERTENSION
     Route: 048
     Dates: start: 201111

REACTIONS (8)
  - Renal failure chronic [Fatal]
  - Right ventricular failure [Fatal]
  - Pulmonary hypertension [Fatal]
  - Haemorrhage [Unknown]
  - Renal failure [Fatal]
  - Anaemia [Not Recovered/Not Resolved]
  - Urinary tract infection [Not Recovered/Not Resolved]
  - Renal function test abnormal [Unknown]
